FAERS Safety Report 7158549-7 (Version None)
Quarter: 2010Q4

REPORT INFORMATION
  Report Type: 
  Country: None (occurrence: None)
  Receive Date: 20101214
  Receipt Date: 20100519
  Transmission Date: 20110411
  Serious: No
  Sender: FDA-Public Use
  Company Number: US-ASTRAZENECA-2010SE23163

PATIENT
  Age: 69 Year
  Sex: Female
  Weight: 99.8 kg

DRUGS (5)
  1. CRESTOR [Suspect]
     Indication: MYOCARDIAL INFARCTION
     Route: 048
     Dates: start: 20100212, end: 20100512
  2. PLAVIX [Concomitant]
     Indication: MYOCARDIAL INFARCTION
  3. LISINOPRIL [Concomitant]
     Indication: MYOCARDIAL INFARCTION
  4. POTASSIUM CHLORIDE [Concomitant]
     Indication: MYOCARDIAL INFARCTION
  5. BLOOD PRESSURE MEDICATION [Concomitant]
     Indication: MYOCARDIAL INFARCTION

REACTIONS (1)
  - ADVERSE EVENT [None]
